FAERS Safety Report 17611475 (Version 2)
Quarter: 2020Q2

REPORT INFORMATION
  Report Type: Spontaneous
  Country: US (occurrence: US)
  Receive Date: 20200401
  Receipt Date: 20200414
  Transmission Date: 20200713
  Serious: Yes (Other)
  Sender: FDA-Public Use
  Company Number: US-ELI_LILLY_AND_COMPANY-US202004000300

PATIENT
  Age: 26 Year
  Sex: Female

DRUGS (1)
  1. EMGALITY [Suspect]
     Active Substance: GALCANEZUMAB-GNLM
     Indication: MIGRAINE PROPHYLAXIS
     Dosage: 120 MG, UNKNOWN
     Route: 058
     Dates: start: 20200325

REACTIONS (12)
  - Injection site pruritus [Unknown]
  - Pain [Unknown]
  - Back pain [Not Recovered/Not Resolved]
  - Palpitations [Unknown]
  - Injection site erythema [Unknown]
  - Constipation [Not Recovered/Not Resolved]
  - Heart rate increased [Unknown]
  - Syncope [Unknown]
  - Impaired gastric emptying [Unknown]
  - Abdominal pain upper [Not Recovered/Not Resolved]
  - Prescribed underdose [Unknown]
  - Overweight [Unknown]

NARRATIVE: CASE EVENT DATE: 20200325
